FAERS Safety Report 16749807 (Version 1)
Quarter: 2019Q3

REPORT INFORMATION
  Report Type: Spontaneous
  Country: US (occurrence: US)
  Receive Date: 20190828
  Receipt Date: 20190828
  Transmission Date: 20191005
  Serious: No
  Sender: FDA-Public Use
  Company Number: US-ASTRAZENECA-2019SF11237

PATIENT
  Sex: Female

DRUGS (2)
  1. ALBUTEROL. [Concomitant]
     Active Substance: ALBUTEROL
  2. SYMBICORT [Suspect]
     Active Substance: BUDESONIDE\FORMOTEROL FUMARATE DIHYDRATE
     Dosage: UNKNOWN UNKNOWN
     Route: 055

REACTIONS (9)
  - Chronic obstructive pulmonary disease [Unknown]
  - Gait disturbance [Unknown]
  - Dysphonia [Unknown]
  - Dyspnoea exertional [Unknown]
  - Chest pain [Unknown]
  - Drug ineffective [Unknown]
  - Bronchitis [Unknown]
  - Oxygen saturation decreased [Unknown]
  - Urinary incontinence [Unknown]
